FAERS Safety Report 9397037 (Version 1)
Quarter: 2013Q3

REPORT INFORMATION
  Report Type: Report from Study
  Country: BR (occurrence: BR)
  Receive Date: 20130712
  Receipt Date: 20130712
  Transmission Date: 20140515
  Serious: Yes (Hospitalization)
  Sender: FDA-Public Use
  Company Number: BR-ABBOTT-13P-020-1116319-00

PATIENT
  Age: 49 Year
  Sex: Male

DRUGS (5)
  1. HUMIRA [Suspect]
     Indication: ANKYLOSING SPONDYLITIS
     Route: 058
     Dates: start: 20130614
  2. AMITRIPTYLINE/TENOXICAM/PREDNISONE/FAMOTIDINE (FORMULA) [Concomitant]
     Indication: ANKYLOSING SPONDYLITIS
     Dosage: AT NIGHT
     Route: 048
  3. AMITRIPTYLINE/TENOXICAM/PREDNISONE/FAMOTIDINE (FORMULA) [Concomitant]
     Indication: FIBROMYALGIA
  4. METHOTREXATE/FOLIC ACID (FORMULA) [Concomitant]
     Indication: ANKYLOSING SPONDYLITIS
     Route: 048
  5. METHOTREXATE/FOLIC ACID (FORMULA) [Concomitant]
     Indication: FIBROMYALGIA

REACTIONS (5)
  - Abnormal sensation in eye [Recovered/Resolved]
  - Pyrexia [Recovered/Resolved]
  - Headache [Recovered/Resolved]
  - Dizziness [Recovered/Resolved]
  - Malaise [Recovered/Resolved]
